FAERS Safety Report 4978068-3 (Version None)
Quarter: 2006Q2

REPORT INFORMATION
  Report Type: 
  Country: None (occurrence: None)
  Receive Date: 20060420
  Receipt Date: 20060405
  Transmission Date: 20061013
  Serious: Yes (Hospitalization, Other)
  Sender: FDA-Public Use
  Company Number: CH-BRISTOL-MYERS SQUIBB COMPANY-13350590

PATIENT
  Age: 81 Year
  Sex: Male

DRUGS (3)
  1. TRITTICO AC [Suspect]
     Indication: INSOMNIA
     Route: 048
  2. GABAPENTIN [Concomitant]
  3. CEFTRIAXONE [Concomitant]
     Dates: start: 20051227

REACTIONS (2)
  - ELECTROCARDIOGRAM QT PROLONGED [None]
  - URINARY TRACT INFECTION [None]
